FAERS Safety Report 7543737-8 (Version None)
Quarter: 2011Q2

REPORT INFORMATION
  Report Type: 
  Country: None (occurrence: None)
  Receive Date: 20110613
  Receipt Date: 20040507
  Transmission Date: 20111010
  Serious: Yes (Disabling)
  Sender: FDA-Public Use
  Company Number: PHHO2004JP05056

PATIENT
  Sex: Female
  Weight: 42 kg

DRUGS (10)
  1. PENTCILLIN [Concomitant]
     Dosage: UNK
  2. OMEPRAZOLE [Concomitant]
     Dosage: UNK
  3. SIMULECT [Suspect]
     Indication: RENAL TRANSPLANT
     Dosage: 20 MG, ONCE/SINGLE
     Route: 042
     Dates: start: 20021127, end: 20021127
  4. LANSOPRAZOLE [Concomitant]
     Dosage: UNK
  5. TACROLIMUS [Concomitant]
     Indication: RENAL TRANSPLANT
     Dosage: 1 MG/DAY
     Route: 048
     Dates: start: 20021127, end: 20021127
  6. SIMULECT [Suspect]
     Dosage: 20 MG, ONCE/SINGLE
     Route: 042
     Dates: start: 20021201, end: 20021201
  7. TACROLIMUS [Concomitant]
     Dosage: 6 - 12 MG / DAY
     Route: 048
     Dates: start: 20021128
  8. MEDROL [Concomitant]
     Indication: RENAL TRANSPLANT
     Dosage: 4 - 16 MG / DAY
     Route: 048
     Dates: start: 20021204
  9. SOLU-MEDROL [Concomitant]
     Indication: RENAL TRANSPLANT
     Dosage: 20 - 250 MG / DAY
     Route: 042
     Dates: start: 20021127
  10. CELLCEPT [Concomitant]
     Indication: RENAL TRANSPLANT
     Dosage: 1000 - 1500 MG / DAY
     Route: 048
     Dates: start: 20021127

REACTIONS (1)
  - GLOMERULONEPHRITIS [None]
